FAERS Safety Report 7053921-8 (Version None)
Quarter: 2010Q4

REPORT INFORMATION
  Report Type: 
  Country: None (occurrence: None)
  Receive Date: 20101020
  Receipt Date: 20101012
  Transmission Date: 20110411
  Serious: No
  Sender: FDA-Public Use
  Company Number: US-JNJFOC-20101003775

PATIENT
  Sex: Female
  Weight: 61.69 kg

DRUGS (7)
  1. FENTANYL CITRATE [Suspect]
     Indication: ARTHRALGIA
     Dosage: NDC#: 0781-7241-55
     Route: 062
  2. FENTANYL CITRATE [Suspect]
     Indication: PAIN IN EXTREMITY
     Dosage: NDC#: 0781-7241-55
     Route: 062
  3. ATENOLOL [Concomitant]
     Indication: BLOOD PRESSURE
     Route: 048
  4. EFFEXOR [Concomitant]
     Indication: NERVOUSNESS
     Route: 048
  5. EFFEXOR [Concomitant]
     Indication: ANXIETY
     Route: 048
  6. LOTREL [Concomitant]
     Indication: BLOOD PRESSURE
     Route: 048
  7. LORTAB [Concomitant]
     Indication: BREAKTHROUGH PAIN
     Dosage: DOSE: 10/500
     Route: 048

REACTIONS (3)
  - DRUG DOSE OMISSION [None]
  - INAPPROPRIATE SCHEDULE OF DRUG ADMINISTRATION [None]
  - PAIN [None]
